FAERS Safety Report 9579387 (Version 2)
Quarter: 2013Q4

REPORT INFORMATION
  Report Type: Spontaneous
  Country: US (occurrence: US)
  Receive Date: 20131001
  Receipt Date: 20131001
  Transmission Date: 20140711
  Serious: Yes (Other)
  Sender: FDA-Public Use
  Company Number: US-AMGEN-USASP2013010557

PATIENT
  Age: 73 Year
  Sex: Female
  Weight: 42.63 kg

DRUGS (5)
  1. ENBREL [Suspect]
     Indication: RHEUMATOID ARTHRITIS
     Dosage: 25 MG, EVERY 1-2 WEEKS AS DIRECTED
     Route: 058
  2. BONIVA [Concomitant]
     Dosage: 150 MG, UNK
  3. PLAQUENIL                          /00072602/ [Concomitant]
     Dosage: 200 MG, UNK
  4. ASPIRIN BUFFERED [Concomitant]
     Dosage: 325 MG, UNK
  5. COUMADIN                           /00014802/ [Concomitant]
     Dosage: 1 MG, UNK

REACTIONS (1)
  - Wound infection [Recovered/Resolved]
